FAERS Safety Report 15677349 (Version 2)
Quarter: 2018Q4

REPORT INFORMATION
  Report Type: Spontaneous
  Country: CA (occurrence: CA)
  Receive Date: 20181130
  Receipt Date: 20181204
  Transmission Date: 20190205
  Serious: Yes (Hospitalization, Other)
  Sender: FDA-Public Use
  Company Number: CA-SAKK-2018SA326689AA

PATIENT
  Age: 37 Year
  Sex: Male

DRUGS (2)
  1. ALEMTUZUMAB [Suspect]
     Active Substance: ALEMTUZUMAB
     Dosage: TOTAL DOSE 96 MG (TOTAL IN 2 CYCLE)
     Route: 065
  2. ALEMTUZUMAB [Suspect]
     Active Substance: ALEMTUZUMAB
     Indication: RELAPSING-REMITTING MULTIPLE SCLEROSIS
     Dosage: TOTAL DOSE 96 MG (TOTAL IN 2 CYCLE)
     Route: 065

REACTIONS (12)
  - Haemoptysis [Recovered/Resolved]
  - Proteinuria [Not Recovered/Not Resolved]
  - Goodpasture^s syndrome [Not Recovered/Not Resolved]
  - Vomiting [Unknown]
  - Haematuria [Not Recovered/Not Resolved]
  - Anuria [Not Recovered/Not Resolved]
  - Acute kidney injury [Not Recovered/Not Resolved]
  - Nausea [Unknown]
  - Pulmonary haemorrhage [Recovered/Resolved]
  - Pyrexia [Unknown]
  - Decreased appetite [Unknown]
  - Haemoglobinuria [Not Recovered/Not Resolved]
